FAERS Safety Report 16817312 (Version 1)
Quarter: 2019Q3

REPORT INFORMATION
  Report Type: Spontaneous
  Country: US (occurrence: US)
  Receive Date: 20190917
  Receipt Date: 20190917
  Transmission Date: 20191005
  Serious: No
  Sender: FDA-Public Use
  Company Number: US-PFIZER INC-2019227538

PATIENT
  Age: 60 Year
  Sex: Female

DRUGS (2)
  1. LYRICA [Suspect]
     Active Substance: PREGABALIN
     Indication: CONGENITAL NEUROPATHY
  2. LYRICA [Suspect]
     Active Substance: PREGABALIN
     Indication: NEUROPATHY PERIPHERAL
     Dosage: 150 MG, THREE TIME DAILY
     Route: 048

REACTIONS (4)
  - Product prescribing error [Unknown]
  - Product use in unapproved indication [Unknown]
  - Hypersensitivity [Unknown]
  - Off label use [Unknown]
